FAERS Safety Report 4591417-3 (Version None)
Quarter: 2005Q1

REPORT INFORMATION
  Report Type: 
  Country: None (occurrence: None)
  Receive Date: 20050225
  Receipt Date: 20020321
  Transmission Date: 20050727
  Serious: Yes (Hospitalization, Other)
  Sender: FDA-Public Use
  Company Number: PHNU2002DE01127

PATIENT
  Age: 35 Year
  Sex: Male

DRUGS (4)
  1. TAVOR [Concomitant]
     Dosage: 6MG/DAY
     Route: 048
     Dates: start: 20020308
  2. HALDOL [Concomitant]
     Indication: SCHIZOPHRENIA
     Dosage: 20 MG, QD
     Route: 048
     Dates: start: 20020308, end: 20020404
  3. CLOZARIL [Suspect]
     Dosage: UP TO 100MG/DAY
     Route: 048
     Dates: start: 20020312, end: 20020325
  4. CLOZARIL [Suspect]
     Dosage: 300MG/DAY
     Route: 048
     Dates: start: 19960401, end: 20011201

REACTIONS (3)
  - CARDIAC FAILURE [None]
  - CARDIOMEGALY [None]
  - ELECTROCARDIOGRAM ABNORMAL [None]
